FAERS Safety Report 4355177-3 (Version None)
Quarter: 2004Q2

REPORT INFORMATION
  Report Type: 
  Country: None (occurrence: None)
  Receive Date: 20040504
  Receipt Date: 20040422
  Transmission Date: 20050107
  Serious: Yes (Hospitalization)
  Sender: FDA-Public Use
  Company Number: 2004210345FR

PATIENT
  Age: 73 Year
  Sex: Male

DRUGS (8)
  1. CAMPTOSAR [Suspect]
     Indication: SMALL CELL LUNG CANCER STAGE UNSPECIFIED
     Dosage: 65 MG/M2, CYCLIC, IV
     Route: 042
     Dates: start: 20040318, end: 20040318
  2. XATRAL - SLOW RELEASE (ALFUZOSIN HYDROCHLORIDE) [Concomitant]
  3. APPROVEL (IRBESARTAN) [Concomitant]
  4. FORLAX (MACROGOL) [Concomitant]
  5. DURAGESIC [Concomitant]
  6. ZOPHREN (ONDANSETRON HYDROCHLORIDE) [Concomitant]
  7. OFLOXACIN [Concomitant]
  8. LOVENOX [Concomitant]

REACTIONS (6)
  - COLONIC POLYP [None]
  - DEHYDRATION [None]
  - DIARRHOEA [None]
  - GENERAL PHYSICAL HEALTH DETERIORATION [None]
  - HAEMATOCHEZIA [None]
  - HYPONATRAEMIA [None]
